FAERS Safety Report 6022134-0 (Version None)
Quarter: 2008Q4

REPORT INFORMATION
  Report Type: 
  Country: None (occurrence: None)
  Receive Date: 20081229
  Receipt Date: 20081217
  Transmission Date: 20090506
  Serious: No
  Sender: FDA-Public Use
  Company Number: US-ASTRAZENECA-2008UW28301

PATIENT
  Age: 91 Year
  Sex: Female
  Weight: 48.5 kg

DRUGS (4)
  1. CRESTOR [Suspect]
     Indication: GASTROOESOPHAGEAL REFLUX DISEASE
     Route: 048
  2. NORVASC [Concomitant]
  3. OSTEO BI-FLEX [Concomitant]
  4. CALCIUM [Concomitant]

REACTIONS (1)
  - BONE PAIN [None]
